FAERS Safety Report 7775645-1 (Version None)
Quarter: 2011Q3

REPORT INFORMATION
  Report Type: 
  Country: None (occurrence: None)
  Receive Date: 20110923
  Receipt Date: 20110224
  Transmission Date: 20111222
  Serious: Yes (Hospitalization)
  Sender: FDA-Public Use
  Company Number: US-GLAXOSMITHKLINE-A0915592A

PATIENT
  Age: 65 Year
  Sex: Female

DRUGS (1)
  1. AVANDIA [Suspect]
     Indication: DIABETES MELLITUS
     Route: 048
     Dates: start: 20000825, end: 20011001

REACTIONS (3)
  - CORONARY ARTERY OCCLUSION [None]
  - ANGIOPLASTY [None]
  - STENT PLACEMENT [None]
